FAERS Safety Report 15471811 (Version 9)
Quarter: 2019Q3

REPORT INFORMATION
  Report Type: Report from Study
  Country: PA (occurrence: PA)
  Receive Date: 20181008
  Receipt Date: 20190712
  Transmission Date: 20191004
  Serious: Yes (Other)
  Sender: FDA-Public Use
  Company Number: PA-ROCHE-2005105

PATIENT
  Age: 42 Year
  Sex: Female

DRUGS (6)
  1. XOLAIR [Suspect]
     Active Substance: OMALIZUMAB
     Indication: ASTHMA
     Dosage: 150 MG, QMO
     Route: 058
     Dates: start: 201708
  2. MONTELUKAST SODIUM. [Suspect]
     Active Substance: MONTELUKAST SODIUM
     Indication: PRODUCT USED FOR UNKNOWN INDICATION
     Dosage: 25 MG, QD
     Route: 048
  3. SALBUTAMOL [Concomitant]
     Active Substance: ALBUTEROL
     Indication: PRODUCT USED FOR UNKNOWN INDICATION
     Route: 065
  4. BETAMETHASONE. [Concomitant]
     Active Substance: BETAMETHASONE
     Indication: PRODUCT USED FOR UNKNOWN INDICATION
     Route: 065
  5. XOLAIR [Suspect]
     Active Substance: OMALIZUMAB
     Dosage: UNK
     Route: 065
     Dates: start: 20170928
  6. LORATADINE. [Concomitant]
     Active Substance: LORATADINE
     Indication: PRODUCT USED FOR UNKNOWN INDICATION
     Route: 048

REACTIONS (30)
  - Visual impairment [Unknown]
  - Haematoma [Unknown]
  - Bronchitis [Recovering/Resolving]
  - Injection site movement impairment [Unknown]
  - Oedema peripheral [Unknown]
  - Helicobacter infection [Unknown]
  - Vision blurred [Unknown]
  - Headache [Not Recovered/Not Resolved]
  - Periorbital pain [Unknown]
  - Administration site inflammation [Unknown]
  - Eye irritation [Unknown]
  - Sinusitis [Unknown]
  - Pruritus [Unknown]
  - Pain in extremity [Unknown]
  - Conjunctivitis allergic [Unknown]
  - Arthritis [Unknown]
  - Rhinitis allergic [Unknown]
  - Asthma [Unknown]
  - Dermatitis atopic [Unknown]
  - Injection site pain [Recovered/Resolved]
  - Urticaria [Recovered/Resolved]
  - Reflux gastritis [Unknown]
  - Paranasal cyst [Unknown]
  - Hypersensitivity [Unknown]
  - Rheumatoid arthritis [Unknown]
  - Cough [Unknown]
  - Pyrexia [Unknown]
  - Flushing [Unknown]
  - Blood pressure increased [Unknown]
  - Rheumatoid factor increased [Unknown]

NARRATIVE: CASE EVENT DATE: 201809
